FAERS Safety Report 16778977 (Version 2)
Quarter: 2019Q4

REPORT INFORMATION
  Report Type: Spontaneous
  Country: US (occurrence: US)
  Receive Date: 20190906
  Receipt Date: 20191214
  Transmission Date: 20200122
  Serious: Yes (Other)
  Sender: FDA-Public Use
  Company Number: US-ROCHE-2400923

PATIENT
  Age: 67 Year
  Sex: Female

DRUGS (1)
  1. ACTEMRA [Suspect]
     Active Substance: TOCILIZUMAB
     Indication: OPTIC NERVE DISORDER
     Dosage: STRENGTH 162 MG/0.9 M
     Route: 058
     Dates: start: 20190514

REACTIONS (6)
  - Blood cholesterol increased [Unknown]
  - Intentional product use issue [Unknown]
  - Off label use [Unknown]
  - Blood glucose increased [Unknown]
  - Joint swelling [Unknown]
  - Hypertension [Unknown]

NARRATIVE: CASE EVENT DATE: 201908
